FAERS Safety Report 15213536 (Version 2)
Quarter: 2018Q3

REPORT INFORMATION
  Report Type: Report from Study
  Country: LT (occurrence: LT)
  Receive Date: 20180730
  Receipt Date: 20180910
  Transmission Date: 20181010
  Serious: Yes (Hospitalization, Other)
  Sender: FDA-Public Use
  Company Number: LT-SA-2016SA170047

PATIENT
  Age: 50 Year
  Sex: Male
  Weight: 84.5 kg

DRUGS (6)
  1. PERMETHRIN. [Concomitant]
     Active Substance: PERMETHRIN
     Dosage: UNK
     Dates: start: 20160830, end: 20160901
  2. ATODERM [Concomitant]
     Dosage: UNK
     Dates: start: 20141216
  3. CLEMASTINE [Concomitant]
     Active Substance: CLEMASTINE
     Dosage: UNK
     Dates: start: 20150724
  4. DUPILUMAB [Suspect]
     Active Substance: DUPILUMAB
     Indication: DERMATITIS ATOPIC
     Dosage: 300 MG,BID
     Route: 058
     Dates: start: 20151007, end: 20151007
  5. DUPILUMAB [Suspect]
     Active Substance: DUPILUMAB
     Dosage: 300 MG,QW
     Route: 058
     Dates: start: 201510, end: 20160831
  6. LORATADINE. [Concomitant]
     Active Substance: LORATADINE
     Dosage: UNK
     Dates: start: 20151014

REACTIONS (2)
  - Plasmacytoma [Recovered/Resolved]
  - Plasma cell myeloma [Recovering/Resolving]

NARRATIVE: CASE EVENT DATE: 20160830
